FAERS Safety Report 9469718 (Version 1)
Quarter: 2013Q3

REPORT INFORMATION
  Report Type: Report from Study
  Country: AR (occurrence: AR)
  Receive Date: 20130822
  Receipt Date: 20130822
  Transmission Date: 20140515
  Serious: Yes (Hospitalization)
  Sender: FDA-Public Use
  Company Number: PHHY2013AR089461

PATIENT
  Sex: Male

DRUGS (2)
  1. DIOVAN D [Suspect]
     Indication: HYPERTENSION
     Dosage: 1 DF (160 MG VALS AND 12.5 MG HCTZ), BID
     Route: 048
  2. DIOVAN D [Suspect]
     Indication: HEART RATE DECREASED

REACTIONS (5)
  - Myocardial infarction [Recovering/Resolving]
  - Cardiac arrest [Recovering/Resolving]
  - H1N1 influenza [Recovered/Resolved]
  - Hyperglycaemia [Recovering/Resolving]
  - Insulin resistance [Unknown]
